FAERS Safety Report 12168683 (Version 2)
Quarter: 2016Q2

REPORT INFORMATION
  Report Type: Spontaneous
  Country: US (occurrence: US)
  Receive Date: 20160310
  Receipt Date: 20160413
  Transmission Date: 20160815
  Serious: Yes (Hospitalization, Other)
  Sender: FDA-Public Use
  Company Number: US-GILEAD-2016-0202195

PATIENT
  Age: 55 Year
  Sex: Female
  Weight: 66.21 kg

DRUGS (4)
  1. HARVONI [Suspect]
     Active Substance: LEDIPASVIR\SOFOSBUVIR
     Indication: HEPATITIS C
     Dosage: UNK
     Route: 065
     Dates: start: 20151221, end: 20160218
  2. VITAMIN D [Concomitant]
     Active Substance: CHOLECALCIFEROL
  3. MAXALT [Concomitant]
     Active Substance: RIZATRIPTAN BENZOATE
     Dosage: UNK, PRN
  4. TOPAMAX [Concomitant]
     Active Substance: TOPIRAMATE

REACTIONS (6)
  - Glomerular filtration rate decreased [Unknown]
  - Fluid intake reduced [Unknown]
  - Unhealthy diet [Unknown]
  - Acute kidney injury [Recovered/Resolved]
  - Abdominal pain [Unknown]
  - Drug dose omission [Unknown]

NARRATIVE: CASE EVENT DATE: 20160227
